FAERS Safety Report 5127238-2 (Version None)
Quarter: 2006Q4

REPORT INFORMATION
  Report Type: 
  Country: None (occurrence: None)
  Receive Date: 20061010
  Receipt Date: 20060929
  Transmission Date: 20070319
  Serious: Yes (Hospitalization, Disabling, Other)
  Sender: FDA-Public Use
  Company Number: JP-2006-012236

PATIENT
  Age: 62 Year
  Sex: Male
  Weight: 63 kg

DRUGS (8)
  1. FLUDARA [Suspect]
     Indication: CHRONIC LYMPHOCYTIC LEUKAEMIA
     Dosage: 30.42 MG, CYCLE X 5D, INTRAVENOUS
     Route: 042
     Dates: start: 20050815, end: 20050819
  2. FLUDARA [Suspect]
     Indication: CHRONIC LYMPHOCYTIC LEUKAEMIA
     Dosage: 30.42 MG, CYCLE X 5D, INTRAVENOUS
     Route: 042
     Dates: start: 20050912, end: 20050916
  3. FLUDARA [Suspect]
     Indication: CHRONIC LYMPHOCYTIC LEUKAEMIA
     Dosage: 30.42 MG, CYCLE X 5D, INTRAVENOUS
     Route: 042
     Dates: start: 20051011, end: 20051015
  4. MUCOSTA (REBAMIPIDE) [Concomitant]
  5. BIOFERMIN (BACILLUS SUBTILIS, STREPTOCOCCUS FAECALIS) [Concomitant]
  6. SEVEN EP (ENZYMES NOS) CAPSULE [Concomitant]
  7. FUNGIZONE (AMPHOTERICIN B) SYRUP [Concomitant]
  8. IMMUNE GLOBULIN INTRAVENOUS (HUMAN) [Concomitant]

REACTIONS (12)
  - CONDITION AGGRAVATED [None]
  - DIARRHOEA [None]
  - ENTERITIS INFECTIOUS [None]
  - FOLLICULITIS [None]
  - IMMUNODEFICIENCY [None]
  - LICHEN PLANUS [None]
  - MALAISE [None]
  - NEUTROPHIL COUNT DECREASED [None]
  - PYREXIA [None]
  - SKIN EROSION [None]
  - SKIN INFECTION [None]
  - STOMATITIS [None]
